FAERS Safety Report 7691079-2 (Version None)
Quarter: 2011Q3

REPORT INFORMATION
  Report Type: 
  Country: None (occurrence: None)
  Receive Date: 20110815
  Receipt Date: 20110805
  Transmission Date: 20111222
  Serious: Yes (Life-Threatening)
  Sender: FDA-Public Use
  Company Number: 2011AP001699

PATIENT
  Age: 43 Year
  Sex: Female

DRUGS (5)
  1. CETIRIZINE HCL [Concomitant]
  2. ANSOPRAZOLE (LANSOPRAZOLE) [Concomitant]
  3. LEFLUNOMIDE [Suspect]
     Indication: PSORIATIC ARTHROPATHY
     Dosage: 10 MG;QD; PO
     Route: 048
     Dates: start: 20031113
  4. ETODOLAC [Concomitant]
  5. HARPAGOPHYTUM PROCUMBENS (HARPAGOPHYTUM PROCUMBENS) [Concomitant]

REACTIONS (1)
  - BREAST CANCER [None]
